FAERS Safety Report 4755121-0 (Version None)
Quarter: 2005Q3

REPORT INFORMATION
  Report Type: 
  Country: None (occurrence: None)
  Receive Date: 20050829
  Receipt Date: 20050823
  Transmission Date: 20060218
  Serious: Yes (Other)
  Sender: FDA-Public Use
  Company Number: US-JNJFOC-20041207408

PATIENT
  Sex: Female
  Weight: 62.6 kg

DRUGS (10)
  1. REMICADE [Suspect]
     Indication: CROHN'S DISEASE
     Route: 042
  2. PRENATAL VITAMINS [Concomitant]
  3. PRENATAL VITAMINS [Concomitant]
  4. PRENATAL VITAMINS [Concomitant]
  5. PRENATAL VITAMINS [Concomitant]
  6. PRENATAL VITAMINS [Concomitant]
  7. PRENATAL VITAMINS [Concomitant]
  8. PRENATAL VITAMINS [Concomitant]
  9. PRENATAL VITAMINS [Concomitant]
     Indication: NUTRITIONAL SUPPORT
  10. PENICILLIN [Concomitant]

REACTIONS (3)
  - CAESAREAN SECTION [None]
  - DRUG EXPOSURE DURING PREGNANCY [None]
  - PRE-ECLAMPSIA [None]
